FAERS Safety Report 8613691-6 (Version None)
Quarter: 2012Q3

REPORT INFORMATION
  Report Type: 
  Country: None (occurrence: None)
  Receive Date: 20120823
  Receipt Date: 20120820
  Transmission Date: 20120928
  Serious: Yes (Hospitalization)
  Sender: FDA-Public Use
  Company Number: US-BIOGENIDEC-2012BI028127

PATIENT
  Age: 42 Year
  Sex: Female
  Weight: 108 kg

DRUGS (25)
  1. ALBUTEROL [Concomitant]
  2. OXYCODONE/ACETAMINOPHEN [Concomitant]
  3. DULOXETINE HYDROCHLORIDE [Concomitant]
  4. TIZANIDINE HYDROCHLORIDE [Concomitant]
  5. DIAZEPAM [Concomitant]
     Route: 048
  6. ENOXAPARIN [Concomitant]
  7. GABAPENTIN [Concomitant]
  8. BISOCODYL [Concomitant]
  9. FENOFIBRATE [Concomitant]
     Route: 048
  10. ASCORBIC ACID [Concomitant]
     Dates: start: 20091223
  11. FUROSEMIDE [Concomitant]
     Indication: HYPERTENSION
  12. INSULIN LISPRO [Concomitant]
     Indication: DIABETES MELLITUS
  13. ONDANSETRON [Concomitant]
  14. BACLOFEN [Concomitant]
     Dates: start: 20120322
  15. EZETIMIBE [Concomitant]
     Indication: HYPERLIPIDAEMIA
  16. LEVOTHYROXINE SODIUM [Concomitant]
     Indication: HYPOTHYROIDISM
  17. ACETAMINOPHEN [Concomitant]
  18. ALU-MAG HYDROXIDE-SIMETH [Concomitant]
  19. ESOMEPRAZOLE SODIUM [Concomitant]
  20. LISINOPRIL [Concomitant]
     Indication: HYPERTENSION
  21. LORAZEPAM [Concomitant]
  22. CHOLECALCIFEROL [Concomitant]
     Route: 048
  23. DOCUSATE [Concomitant]
     Route: 048
  24. TYSABRI [Suspect]
     Indication: MULTIPLE SCLEROSIS
     Route: 042
     Dates: start: 20091120
  25. OXYCODONE HCL [Concomitant]

REACTIONS (3)
  - UROSEPSIS [None]
  - ESCHERICHIA URINARY TRACT INFECTION [None]
  - ENCEPHALITIC INFECTION [None]
